FAERS Safety Report 9020612 (Version 1)
Quarter: 2013Q1

REPORT INFORMATION
  Report Type: Spontaneous
  Country: US (occurrence: US)
  Receive Date: 20130119
  Receipt Date: 20130119
  Transmission Date: 20140127
  Serious: No
  Sender: FDA-Public Use
  Company Number: US-ALLERGAN-1206912US

PATIENT
  Sex: Female

DRUGS (3)
  1. BOTOX? [Suspect]
     Indication: MIGRAINE
     Dosage: 200 UNITS, SINGLE
     Route: 030
     Dates: start: 20120327, end: 20120327
  2. ZOMIG [Concomitant]
     Indication: MIGRAINE
  3. IMITREX                            /01044801/ [Concomitant]
     Indication: MIGRAINE

REACTIONS (3)
  - Fall [Unknown]
  - Head injury [Unknown]
  - Drug ineffective [Unknown]
